APPROVED DRUG PRODUCT: QUINIDINE GLUCONATE
Active Ingredient: QUINIDINE GLUCONATE
Strength: 324MG
Dosage Form/Route: TABLET, EXTENDED RELEASE;ORAL
Application: A089164 | Product #001
Applicant: SUPERPHARM CORP
Approved: Nov 21, 1985 | RLD: No | RS: No | Type: DISCN